FAERS Safety Report 5847796-X (Version None)
Quarter: 2008Q3

REPORT INFORMATION
  Report Type: 
  Country: None (occurrence: None)
  Receive Date: 20080818
  Receipt Date: 20080808
  Transmission Date: 20090109
  Serious: Yes (Hospitalization)
  Sender: FDA-Public Use
  Company Number: NO-BAYER-200824245GPV

PATIENT
  Age: 77 Year
  Sex: Female
  Weight: 40 kg

DRUGS (10)
  1. ADALAT [Suspect]
     Indication: HYPERTENSION
     Dosage: UNIT DOSE: 30 MG
     Route: 048
     Dates: end: 20080722
  2. GLUCOPHAGE [Suspect]
     Indication: TYPE 2 DIABETES MELLITUS
     Dosage: UNIT DOSE: 500 MG
     Route: 048
     Dates: end: 20080722
  3. AMARYL [Suspect]
     Indication: TYPE 2 DIABETES MELLITUS
     Dosage: UNIT DOSE: 2 MG
     Route: 048
     Dates: end: 20080722
  4. SEROXAT [Suspect]
     Indication: DRUG USE FOR UNKNOWN INDICATION
     Dosage: UNIT DOSE: 20 MG
     Route: 048
     Dates: end: 20080723
  5. SERETIDE DISKUS [Concomitant]
     Indication: CHRONIC OBSTRUCTIVE PULMONARY DISEASE
     Route: 055
  6. VENTOLIN [Concomitant]
     Indication: CHRONIC OBSTRUCTIVE PULMONARY DISEASE
     Route: 055
  7. VENTOLIN [Concomitant]
     Route: 055
  8. ATROVENT [Concomitant]
     Indication: CHRONIC OBSTRUCTIVE PULMONARY DISEASE
     Route: 055
  9. XALATAN [Concomitant]
     Indication: DRUG USE FOR UNKNOWN INDICATION
     Route: 047
  10. SPIRIX [Concomitant]
     Indication: DRUG USE FOR UNKNOWN INDICATION
     Dosage: UNIT DOSE: 100 MG
     Route: 048
     Dates: end: 20080722

REACTIONS (2)
  - DRUG TOXICITY [None]
  - HYPOGLYCAEMIA [None]
